FAERS Safety Report 14952794 (Version 1)
Quarter: 2018Q2

REPORT INFORMATION
  Report Type: Spontaneous
  Country: US (occurrence: US)
  Receive Date: 20180530
  Receipt Date: 20180530
  Transmission Date: 20180711
  Serious: Yes (Hospitalization, Other)
  Sender: FDA-Public Use
  Company Number: US-IMPAX LABORATORIES, INC-2018-IPXL-01818

PATIENT
  Age: 77 Year
  Sex: Female

DRUGS (3)
  1. DIGOXIN. [Suspect]
     Active Substance: DIGOXIN
     Indication: ATRIAL FIBRILLATION
     Dosage: UNK
     Route: 065
  2. AMIODARONE [Interacting]
     Active Substance: AMIODARONE
     Indication: TACHYARRHYTHMIA
     Dosage: UNK
     Route: 065
  3. DIGOXIN. [Interacting]
     Active Substance: DIGOXIN
     Dosage: UNK, LOWER DOSE
     Route: 065

REACTIONS (11)
  - Labelled drug-drug interaction medication error [Unknown]
  - Tachyarrhythmia [Recovered/Resolved]
  - Hyperthyroidism [Unknown]
  - Drug-disease interaction [Unknown]
  - Toxicity to various agents [Unknown]
  - Lacunar infarction [Unknown]
  - Acute kidney injury [Unknown]
  - Confusional state [Recovered/Resolved]
  - Sinus node dysfunction [Recovered/Resolved]
  - Dehydration [Recovered/Resolved]
  - Lethargy [Recovered/Resolved]
